FAERS Safety Report 8879764 (Version 4)
Quarter: 2012Q4

REPORT INFORMATION
  Report Type: 
  Country: US (occurrence: US)
  Receive Date: 20121101
  Receipt Date: 20121120
  Transmission Date: 20130627
  Serious: Yes (Other)
  Sender: FDA-Public Use
  Company Number: US-JNJFOC-20121014944

PATIENT
  Sex: Male

DRUGS (12)
  1. XARELTO [Suspect]
     Indication: EMBOLISM VENOUS
     Route: 065
  2. XARELTO [Suspect]
     Indication: EMBOLISM VENOUS
     Route: 065
  3. XARELTO [Suspect]
     Indication: EMBOLISM VENOUS
     Route: 065
  4. XARELTO [Suspect]
     Indication: KNEE ARTHROPLASTY
     Route: 065
  5. XARELTO [Suspect]
     Indication: KNEE ARTHROPLASTY
     Route: 065
  6. XARELTO [Suspect]
     Indication: KNEE ARTHROPLASTY
     Route: 065
  7. XARELTO [Suspect]
     Indication: CEREBROVASCULAR ACCIDENT PROPHYLAXIS
     Route: 065
  8. XARELTO [Suspect]
     Indication: CEREBROVASCULAR ACCIDENT PROPHYLAXIS
     Route: 065
  9. XARELTO [Suspect]
     Indication: CEREBROVASCULAR ACCIDENT PROPHYLAXIS
     Route: 065
  10. XARELTO [Suspect]
     Indication: ATRIAL FIBRILLATION
     Route: 065
  11. XARELTO [Suspect]
     Indication: ATRIAL FIBRILLATION
     Route: 065
  12. XARELTO [Suspect]
     Indication: ATRIAL FIBRILLATION
     Route: 065

REACTIONS (1)
  - Haemarthrosis [Unknown]
